FAERS Safety Report 16542977 (Version 1)
Quarter: 2019Q3

REPORT INFORMATION
  Report Type: Spontaneous
  Country: CN (occurrence: CN)
  Receive Date: 20190709
  Receipt Date: 20190709
  Transmission Date: 20191004
  Serious: Yes (Hospitalization, Other)
  Sender: FDA-Public Use
  Company Number: CN-SA-2019SA181307

PATIENT
  Age: 62 Year
  Sex: Male

DRUGS (2)
  1. GLIMEPIRIDE. [Suspect]
     Active Substance: GLIMEPIRIDE
     Indication: DIABETES MELLITUS
     Route: 048
  2. METFORMIN HYDROCHLORIDE. [Concomitant]
     Active Substance: METFORMIN HYDROCHLORIDE
     Indication: DIABETES MELLITUS
     Route: 048

REACTIONS (16)
  - Vomiting [Unknown]
  - Urine output decreased [Unknown]
  - Ureteral necrosis [Unknown]
  - Kidney enlargement [Unknown]
  - Renal impairment [Unknown]
  - Perinephric oedema [Unknown]
  - Renal tubular necrosis [Unknown]
  - Emphysematous pyelonephritis [Not Recovered/Not Resolved]
  - Nausea [Unknown]
  - Perinephritis [Not Recovered/Not Resolved]
  - Haematuria [Unknown]
  - Pneumatosis [Unknown]
  - Flatulence [Unknown]
  - Inappropriate schedule of product administration [Unknown]
  - Abdominal distension [Unknown]
  - Ureter abscess [Unknown]
